FAERS Safety Report 10087738 (Version 2)
Quarter: 2014Q2

REPORT INFORMATION
  Report Type: Spontaneous
  Country: US (occurrence: US)
  Receive Date: 20140418
  Receipt Date: 20140418
  Transmission Date: 20141212
  Serious: No
  Sender: FDA-Public Use
  Company Number: US-PURDUE-USA-2014-0110786

PATIENT
  Age: 61 Year
  Sex: Male

DRUGS (2)
  1. OXYCONTIN (NDA 22-272) [Suspect]
     Indication: PAIN
     Dosage: 80 MG, Q12H
     Route: 048
  2. OXYCODONE HCL IR CAPSULES [Concomitant]
     Indication: PAIN
     Dosage: 30 MG, TID
     Route: 048

REACTIONS (6)
  - Drug withdrawal syndrome [Unknown]
  - Poor quality sleep [Unknown]
  - Pruritus [Unknown]
  - Somnolence [Unknown]
  - Feeling abnormal [Unknown]
  - Intentional product misuse [Unknown]
